APPROVED DRUG PRODUCT: DEXAMETHASONE
Active Ingredient: DEXAMETHASONE
Strength: 0.5MG/5ML
Dosage Form/Route: ELIXIR;ORAL
Application: A084754 | Product #001 | TE Code: AA
Applicant: KANCHAN HEALTHCARE INC
Approved: Approved Prior to Jan 1, 1982 | RLD: No | RS: Yes | Type: RX